FAERS Safety Report 23940191 (Version 1)
Quarter: 2024Q2

REPORT INFORMATION
  Report Type: Report from Study
  Country: CA (occurrence: CA)
  Receive Date: 20240605
  Receipt Date: 20240605
  Transmission Date: 20240716
  Serious: Yes (Other)
  Sender: FDA-Public Use
  Company Number: CA-TAKEDA-CA202020803

PATIENT
  Age: 59 Year
  Sex: Female

DRUGS (35)
  1. TEDUGLUTIDE [Suspect]
     Active Substance: TEDUGLUTIDE
     Indication: Short-bowel syndrome
     Dosage: 3.2 MILLIGRAM, QD
     Route: 065
     Dates: start: 20160209
  2. TEDUGLUTIDE [Suspect]
     Active Substance: TEDUGLUTIDE
     Indication: Short-bowel syndrome
     Dosage: 3.2 MILLIGRAM, QD
     Route: 065
     Dates: start: 20160209
  3. TEDUGLUTIDE [Suspect]
     Active Substance: TEDUGLUTIDE
     Indication: Short-bowel syndrome
     Dosage: 3.2 MILLIGRAM, QD
     Route: 065
     Dates: start: 20160209
  4. TEDUGLUTIDE [Suspect]
     Active Substance: TEDUGLUTIDE
     Indication: Short-bowel syndrome
     Dosage: 3.2 MILLIGRAM, QD
     Route: 065
     Dates: start: 20160209
  5. TEDUGLUTIDE [Suspect]
     Active Substance: TEDUGLUTIDE
     Dosage: 3 MILLIGRAM, QD
     Route: 058
  6. TEDUGLUTIDE [Suspect]
     Active Substance: TEDUGLUTIDE
     Dosage: 3 MILLIGRAM, QD
     Route: 058
  7. TEDUGLUTIDE [Suspect]
     Active Substance: TEDUGLUTIDE
     Dosage: 3 MILLIGRAM, QD
     Route: 058
  8. TEDUGLUTIDE [Suspect]
     Active Substance: TEDUGLUTIDE
     Dosage: 3 MILLIGRAM, QD
     Route: 058
  9. TEDUGLUTIDE [Suspect]
     Active Substance: TEDUGLUTIDE
     Dosage: 3 MILLIGRAM, QD
     Route: 058
  10. TEDUGLUTIDE [Suspect]
     Active Substance: TEDUGLUTIDE
     Dosage: 3 MILLIGRAM, QD
     Route: 058
  11. TEDUGLUTIDE [Suspect]
     Active Substance: TEDUGLUTIDE
     Dosage: 3 MILLIGRAM, QD
     Route: 058
  12. TEDUGLUTIDE [Suspect]
     Active Substance: TEDUGLUTIDE
     Dosage: 3 MILLIGRAM, QD
     Route: 058
  13. VITAMIN B12 [Concomitant]
     Active Substance: CYANOCOBALAMIN
     Dosage: 1000 MICROGRAM, QD
     Route: 065
  14. NABILONE [Concomitant]
     Active Substance: NABILONE
     Dosage: 1 MILLIGRAM, BID
     Route: 048
  15. PANTOPRAZOLE [Concomitant]
     Active Substance: PANTOPRAZOLE
     Dosage: 40 MILLIGRAM, QD
     Route: 048
  16. SANDOSTATIN [Concomitant]
     Active Substance: OCTREOTIDE ACETATE
     Dosage: 20 MILLIGRAM, MONTHLY
     Route: 030
     Dates: end: 202202
  17. ESCITALOPRAM [Concomitant]
     Active Substance: ESCITALOPRAM OXALATE
     Indication: Anxiety
     Dosage: 20 MILLIGRAM, QD
     Route: 065
     Dates: start: 20181001
  18. VITAMIN D2 [Concomitant]
     Active Substance: ERGOCALCIFEROL
     Dosage: 10 INTERNATIONAL UNIT
     Route: 048
  19. VITAMIN D2 [Concomitant]
     Active Substance: ERGOCALCIFEROL
     Dosage: 50000 INTERNATIONAL UNIT, 1/WEEK
     Route: 065
  20. VITAMINS [Concomitant]
     Active Substance: VITAMINS
     Dosage: UNK UNK, QD
     Route: 065
  21. Glucosamine/chondroitin [Concomitant]
     Indication: Arthritis
     Dosage: UNK, UNK, QD
     Route: 065
  22. RIZATRIPTAN BENZOATE [Concomitant]
     Active Substance: RIZATRIPTAN BENZOATE
     Indication: Migraine
     Dosage: UNK
     Route: 065
  23. SHINGRIX [Concomitant]
     Active Substance: RECOMBINANT VARICELLA ZOSTER VIRUS (VZV) GLYCOPROTEIN E
     Indication: Herpes zoster
     Dosage: UNK
     Route: 065
  24. SODIUM CHLORIDE [Concomitant]
     Active Substance: SODIUM CHLORIDE
     Dosage: 2100 MILLILITER
     Route: 065
  25. SODIUM [Concomitant]
     Active Substance: SODIUM
     Dosage: UNK
     Route: 065
  26. VITAMIN A [Concomitant]
     Active Substance: VITAMIN A
     Dosage: 20000 INTERNATIONAL UNIT, QD
     Route: 048
  27. SENALINA [Concomitant]
     Dosage: 1 DOSAGE FORM, QD
     Route: 048
  28. MAGNESIUM [Concomitant]
     Active Substance: MAGNESIUM
     Dosage: 10 MILLIGRAM
     Route: 065
  29. MAGNESIUM [Concomitant]
     Active Substance: MAGNESIUM
     Dosage: 250 MILLIGRAM, BID
     Route: 065
  30. SUMATRIPTAN FOCUS [Concomitant]
     Indication: Migraine
     Dosage: UNK
     Route: 065
  31. ESTRACE [Concomitant]
     Active Substance: ESTRADIOL
     Dosage: UNK
     Route: 065
  32. CODEINE [Concomitant]
     Active Substance: CODEINE
     Dosage: 30 MILLIGRAM, BID
     Route: 065
  33. VITAMIN D [Concomitant]
     Active Substance: VITAMIN D NOS
     Indication: Arthritis
     Dosage: UNK
     Route: 065
  34. TPN [Concomitant]
     Active Substance: AMINO ACIDS\DEXTROSE\ELECTROLYTES NOS\SOYBEAN OIL
     Dosage: 4200 MILLILITER, 1/WEEK
     Route: 065
  35. TPN [Concomitant]
     Active Substance: AMINO ACIDS\DEXTROSE\ELECTROLYTES NOS\SOYBEAN OIL
     Dosage: 9450 MILLILITER, 1/WEEK
     Route: 042

REACTIONS (14)
  - Loss of consciousness [Recovered/Resolved]
  - Weight fluctuation [Unknown]
  - Blood test abnormal [Unknown]
  - Throat irritation [Not Recovered/Not Resolved]
  - Rhinorrhoea [Not Recovered/Not Resolved]
  - Migraine [Unknown]
  - Arthritis [Unknown]
  - Diplopia [Not Recovered/Not Resolved]
  - Mucous stools [Unknown]
  - Sigmoidoscopy abnormal [Unknown]
  - Nasopharyngitis [Recovered/Resolved]
  - Product physical issue [Unknown]
  - Incorrect dose administered [Unknown]
  - Product use issue [Unknown]

NARRATIVE: CASE EVENT DATE: 20210601
